FAERS Safety Report 9750078 (Version 3)
Quarter: 2014Q1

REPORT INFORMATION
  Report Type: Spontaneous
  Country: IT (occurrence: IT)
  Receive Date: 20131212
  Receipt Date: 20140327
  Transmission Date: 20141002
  Serious: Yes (Hospitalization, Other)
  Sender: FDA-Public Use
  Company Number: IT-TEVA-449181ISR

PATIENT
  Age: 54 Year
  Sex: Female

DRUGS (12)
  1. CARBOLITHIUM 300MG [Suspect]
     Indication: BIPOLAR DISORDER
     Dosage: 900 MILLIGRAM DAILY;
     Route: 048
     Dates: start: 19950101, end: 20131118
  2. CARBOLITHIUM 300MG [Suspect]
     Dosage: 300 MILLIGRAM DAILY;
     Route: 048
  3. CARBOLITHIUM 300MG [Suspect]
     Dosage: 600 MILLIGRAM DAILY;
     Route: 048
  4. SPORANOX 100MG [Interacting]
     Indication: FUNGAL INFECTION
     Dosage: 200 MILLIGRAM DAILY;
     Route: 048
     Dates: start: 20131113, end: 20131115
  5. TEGRETOL 400 MG [Interacting]
     Indication: BIPOLAR DISORDER
     Dosage: 800 MILLIGRAM DAILY; MODIFIED-RELEASE TABLET
     Route: 048
     Dates: start: 20110501, end: 20131118
  6. TEGRETOL 400 MG [Interacting]
     Dosage: 400 MILLIGRAM DAILY; MODIFIED-RELEASE TABLET
     Route: 048
  7. TACHIPIRINA 1000MG [Concomitant]
     Indication: PYREXIA
     Dosage: 2000 MILLIGRAM DAILY; EFFERVESCENT TABLET
     Route: 048
     Dates: start: 20131113, end: 20131115
  8. PROZIN 100MG [Concomitant]
     Dates: start: 20130801, end: 20131118
  9. PROZIN 100MG [Concomitant]
     Dosage: 150 MILLIGRAM DAILY;
  10. SERENASE 2 MG/ML [Concomitant]
     Dosage: 15 GTT DAILY;
     Route: 048
     Dates: start: 20130801, end: 20131118
  11. VALIUM 5 MG/ML [Concomitant]
     Dosage: 8 GTT DAILY;
     Route: 048
     Dates: start: 20121101, end: 20131118
  12. VALIUM 5 MG/ML [Concomitant]
     Dosage: 15 GTT DAILY;
     Route: 048

REACTIONS (7)
  - Confusional state [Recovered/Resolved]
  - Psychomotor skills impaired [Recovered/Resolved]
  - Headache [Recovered/Resolved]
  - Toxicity to various agents [Recovered/Resolved]
  - Urinary tract infection [Recovered/Resolved]
  - Urinary retention [Recovered/Resolved]
  - Drug interaction [Recovered/Resolved]
